FAERS Safety Report 4286333-0 (Version None)
Quarter: 2004Q1

REPORT INFORMATION
  Report Type: 
  Country: None (occurrence: None)
  Receive Date: 20040121
  Receipt Date: 20030310
  Transmission Date: 20041129
  Serious: Yes (Death, Hospitalization)
  Sender: FDA-Public Use
  Company Number: A03200300523

PATIENT
  Age: 74 Year
  Sex: Female

DRUGS (1)
  1. PLAVIX [Suspect]
     Indication: CEREBROVASCULAR ACCIDENT
     Dosage: 75 MG QD - ORAL
     Route: 048
     Dates: start: 20010101, end: 20030301

REACTIONS (3)
  - ABDOMINAL HAEMATOMA [None]
  - HYPERHIDROSIS [None]
  - NAUSEA [None]
